FAERS Safety Report 6806168-1 (Version None)
Quarter: 2010Q2

REPORT INFORMATION
  Report Type: 
  Country: None (occurrence: None)
  Receive Date: 20100629
  Receipt Date: 20080107
  Transmission Date: 20101027
  Serious: No
  Sender: FDA-Public Use
  Company Number: US-PFIZER INC-2007104373

PATIENT
  Sex: Male
  Weight: 90.72 kg

DRUGS (7)
  1. ZYVOX [Suspect]
     Indication: GENITAL INFECTION BACTERIAL
     Dates: start: 20071101
  2. CIPROFLOXACIN [Suspect]
     Indication: PROSTATITIS
     Dates: start: 20070101
  3. PROTONIX [Concomitant]
  4. ALL OTHER THERAPEUTIC PRODUCTS [Concomitant]
  5. MULTI-VITAMINS [Concomitant]
  6. ZINC [Concomitant]
  7. OFLOXACIN [Concomitant]
     Dates: start: 20071001

REACTIONS (4)
  - BURNING SENSATION [None]
  - INFLAMMATION [None]
  - SEMEN DISCOLOURATION [None]
  - URINE ODOUR ABNORMAL [None]
